FAERS Safety Report 25523727 (Version 1)
Quarter: 2025Q3

REPORT INFORMATION
  Report Type: Spontaneous
  Country: US (occurrence: US)
  Receive Date: 20250707
  Receipt Date: 20250707
  Transmission Date: 20251021
  Serious: Yes (Other)
  Sender: SANOFI AVENTIS
  Company Number: US-SA-2025SA189695

PATIENT
  Sex: Female

DRUGS (1)
  1. LEFLUNOMIDE [Suspect]
     Active Substance: LEFLUNOMIDE

REACTIONS (1)
  - Dementia [Unknown]
